FAERS Safety Report 5525640-8 (Version None)
Quarter: 2007Q4

REPORT INFORMATION
  Report Type: 
  Country: None (occurrence: None)
  Receive Date: 20071120
  Receipt Date: 20071106
  Transmission Date: 20080405
  Serious: Yes (Other)
  Sender: FDA-Public Use
  Company Number: POMP-11261

PATIENT
  Age: 45 Year
  Sex: Male

DRUGS (1)
  1. MYOZYME [Suspect]
     Indication: GLYCOGEN STORAGE DISEASE TYPE II
     Dates: start: 20070401

REACTIONS (3)
  - DIABETES MELLITUS [None]
  - RESPIRATORY DISORDER [None]
  - WEIGHT INCREASED [None]
